FAERS Safety Report 8769912 (Version 1)
Quarter: 2012Q4

REPORT INFORMATION
  Report Type: 
  Country: GB (occurrence: GB)
  Receive Date: 20120906
  Receipt Date: 20120906
  Transmission Date: 20130627
  Serious: Yes (Other)
  Sender: FDA-Public Use
  Company Number: GB-ELI_LILLY_AND_COMPANY-GB201209000518

PATIENT

DRUGS (5)
  1. PRASUGREL HYDROCHLORIDE [Suspect]
     Dosage: 60 mg, other
  2. PRASUGREL HYDROCHLORIDE [Suspect]
     Dosage: 10 mg, qd for 12 months
  3. BIVALIRUDIN [Concomitant]
     Dosage: 0.75 mg/kg, other
  4. BIVALIRUDIN [Concomitant]
     Dosage: 1.75 mg/kg, other
     Route: 042
  5. ASPIRIN [Concomitant]
     Dosage: 75 mg, qd

REACTIONS (1)
  - Thrombosis [Unknown]
